APPROVED DRUG PRODUCT: AMPHETAMINE SULFATE
Active Ingredient: AMPHETAMINE SULFATE
Strength: 10MG
Dosage Form/Route: TABLET;ORAL
Application: A212619 | Product #002 | TE Code: AA
Applicant: GRANULES PHARMACEUTICALS INC
Approved: Aug 5, 2019 | RLD: No | RS: No | Type: RX